FAERS Safety Report 15101697 (Version 2)
Quarter: 2018Q3

REPORT INFORMATION
  Report Type: Spontaneous
  Country: JP (occurrence: JP)
  Receive Date: 20180703
  Receipt Date: 20180731
  Transmission Date: 20181010
  Serious: Yes (Other)
  Sender: FDA-Public Use
  Company Number: JP-SHIRE-JP201822179AA

PATIENT
  Age: 2 Year
  Sex: Male

DRUGS (7)
  1. METHYLPREDNISOLONE. [Concomitant]
     Active Substance: METHYLPREDNISOLONE
     Indication: HISTIOCYTOSIS HAEMATOPHAGIC
     Dosage: 30 MG/KG/DAY
     Route: 042
  2. PREDNISOLONE. [Concomitant]
     Active Substance: PREDNISOLONE
     Indication: HISTIOCYTOSIS HAEMATOPHAGIC
     Dosage: 2 MG/KG/DAY
     Route: 042
  3. GAMMAGARD S/D [Suspect]
     Active Substance: HUMAN IMMUNOGLOBULIN G
     Indication: ACUTE FOCAL BACTERIAL NEPHRITIS
     Dosage: 2 UNK, UNK
     Route: 042
  4. GAMMAGARD S/D [Suspect]
     Active Substance: HUMAN IMMUNOGLOBULIN G
     Indication: C-REACTIVE PROTEIN INCREASED
     Dosage: 400 MG/KG, 1X/DAY:QD
     Route: 042
  5. TAZOBACTAM SODIUM AND PIPERACILLIN SODIUM [Suspect]
     Active Substance: PIPERACILLIN SODIUM\TAZOBACTAM SODIUM
     Indication: ACUTE FOCAL BACTERIAL NEPHRITIS
     Dosage: UNK, UNKNOWN
     Route: 042
  6. GAMMAGARD S/D [Suspect]
     Active Substance: HUMAN IMMUNOGLOBULIN G
     Indication: HISTIOCYTOSIS HAEMATOPHAGIC
  7. AMIKACIN. [Concomitant]
     Active Substance: AMIKACIN
     Indication: ACUTE FOCAL BACTERIAL NEPHRITIS
     Dosage: UNK, UNKNOWN
     Route: 042

REACTIONS (3)
  - Laboratory test abnormal [Unknown]
  - Rash [Recovered/Resolved]
  - Hepatomegaly [Unknown]
